FAERS Safety Report 9685068 (Version 2)
Quarter: 2013Q4

REPORT INFORMATION
  Report Type: Spontaneous
  Country: US (occurrence: US)
  Receive Date: 20131113
  Receipt Date: 20131220
  Transmission Date: 20140711
  Serious: No
  Sender: FDA-Public Use
  Company Number: US-B.I. PHARMACEUTICALS,INC./RIDGEFIELD-2013-BI-35661BP

PATIENT
  Age: 76 Year
  Sex: Male
  Weight: 50 kg

DRUGS (2)
  1. COMBIVENT [Suspect]
     Indication: ASBESTOSIS
     Dosage: DOSE PER APPLICATION: 20 MCG / 100 MCG; DAILY DOSE: 80 MCG/400 MCG
     Route: 055
     Dates: start: 20131031
  2. PROVENTIL [Concomitant]
     Indication: ASBESTOSIS
     Dosage: FORMULATION: INHALATION SOLUTION
     Route: 055

REACTIONS (3)
  - Tremor [Unknown]
  - Tinnitus [Unknown]
  - Off label use [Unknown]
